FAERS Safety Report 12751825 (Version 2)
Quarter: 2016Q4

REPORT INFORMATION
  Report Type: Report from Study
  Country: ES (occurrence: ES)
  Receive Date: 20160915
  Receipt Date: 20161109
  Transmission Date: 20170207
  Serious: Yes (Other)
  Sender: FDA-Public Use
  Company Number: ES-JAZZ-2016-ES-004304

PATIENT
  Age: 13 Year
  Sex: Male

DRUGS (8)
  1. PREDNISONE. [Concomitant]
     Active Substance: PREDNISONE
     Indication: PRODUCT USED FOR UNKNOWN INDICATION
     Dosage: 100 MG, QD
     Route: 048
     Dates: start: 20160216, end: 20160229
  2. ERWINASE [Suspect]
     Active Substance: ASPARAGINASE ERWINIA CHRYSANTHEMI
     Indication: HYPERSENSITIVITY
     Dosage: 20000 IU/M2, EVERY 3 DAYS
     Route: 030
     Dates: start: 20160125, end: 20160129
  3. ERWINASE [Suspect]
     Active Substance: ASPARAGINASE ERWINIA CHRYSANTHEMI
     Indication: PRECURSOR B-LYMPHOBLASTIC LYMPHOMA RECURRENT
     Dosage: 20000 IU/M2, EVERY 3 DAYS
     Route: 030
     Dates: start: 20160118, end: 20160122
  4. PEG/L-ASPARAGINASE [Concomitant]
     Active Substance: PEGASPARGASE
     Indication: PRECURSOR B-LYMPHOBLASTIC LYMPHOMA RECURRENT
     Dosage: 2500 IU/M2, TID
  5. ERWINASE [Suspect]
     Active Substance: ASPARAGINASE ERWINIA CHRYSANTHEMI
     Dosage: 20000 IU/M2, EVERY 3 DAYS
     Route: 030
     Dates: start: 20160201, end: 20160205
  6. ERWINASE [Suspect]
     Active Substance: ASPARAGINASE ERWINIA CHRYSANTHEMI
     Dosage: 20000 IU/M2, EVERY 3 DAYS
     Route: 030
     Dates: start: 20160216, end: 20160218
  7. VINCRISTINE [Concomitant]
     Active Substance: VINCRISTINE
     Indication: PRODUCT USED FOR UNKNOWN INDICATION
     Dosage: 2 MG, SINGLE
     Route: 042
     Dates: start: 20160216, end: 20160229
  8. OMEPRAZOLE. [Concomitant]
     Active Substance: OMEPRAZOLE
     Indication: PRODUCT USED FOR UNKNOWN INDICATION
     Dosage: 20 MG, QD
     Route: 048
     Dates: start: 20160216, end: 20160229

REACTIONS (2)
  - Hypersensitivity [Recovered/Resolved]
  - Ammonia increased [Unknown]
